FAERS Safety Report 16937459 (Version 5)
Quarter: 2021Q1

REPORT INFORMATION
  Report Type: Report from Study
  Country: US (occurrence: US)
  Receive Date: 20191018
  Receipt Date: 20210119
  Transmission Date: 20210419
  Serious: Yes (Other)
  Sender: FDA-Public Use
  Company Number: NVSC2019US009179

PATIENT
  Sex: Female
  Weight: 77.1 kg

DRUGS (6)
  1. TREPROSTINIL SODIUM [Suspect]
     Active Substance: TREPROSTINIL SODIUM
     Dosage: UNK UNK (40 NG/KG/MIN) (CONTINUOUS)
     Route: 042
  2. OPSUMIT [Concomitant]
     Active Substance: MACITENTAN
     Indication: PRODUCT USED FOR UNKNOWN INDICATION
     Dosage: UNK
     Route: 065
  3. TREPROSTINIL SODIUM [Suspect]
     Active Substance: TREPROSTINIL SODIUM
     Dosage: UNK (40 NG/KG/MIN) (CONTINUOUS)
     Route: 042
  4. TREPROSTINIL SODIUM [Suspect]
     Active Substance: TREPROSTINIL SODIUM
     Dosage: UNK (40 NG/KG/MIN) (CONTINUOUS)
     Route: 065
  5. TREPROSTINIL SODIUM [Suspect]
     Active Substance: TREPROSTINIL SODIUM
     Indication: PULMONARY ARTERIAL HYPERTENSION
     Dosage: UNK (40 NG/KG/MIN) (CONTINUOUS)
     Route: 042
     Dates: start: 20190403
  6. WARFARIN [Concomitant]
     Active Substance: WARFARIN
     Indication: PRODUCT USED FOR UNKNOWN INDICATION
     Dosage: UNK
     Route: 065

REACTIONS (5)
  - Malaise [Unknown]
  - Headache [Unknown]
  - Lymphoma [Unknown]
  - Haemorrhage [Unknown]
  - Device breakage [Unknown]
